FAERS Safety Report 4279283-7 (Version None)
Quarter: 2004Q1

REPORT INFORMATION
  Report Type: 
  Country: None (occurrence: None)
  Receive Date: 20040122
  Receipt Date: 20040109
  Transmission Date: 20041129
  Serious: Yes (Hospitalization, Other)
  Sender: FDA-Public Use
  Company Number: 2003124024

PATIENT
  Age: 72 Year
  Sex: Female

DRUGS (6)
  1. DIFLUCAN [Suspect]
     Indication: CANDIDIASIS
     Dosage: 100 MG (DAILY), INTRAVENOUS
     Route: 042
     Dates: start: 20021108, end: 20021114
  2. TIENAM (IMIPENEM, CILASTATIN) [Suspect]
     Indication: INFECTION
     Dosage: 1 GRAM (BID), INTRAVENOUS
     Route: 042
     Dates: start: 20021103, end: 20021110
  3. CEFOZOPRAN HYDROCHLORIDE (CEFOZOPRAN HYDROCHLORIDE) [Suspect]
     Indication: INFECTION
     Dosage: 2 GRAM (BID), INTRAVENOUS
     Route: 042
     Dates: start: 20021110, end: 20021114
  4. VANCOMYCIN HCL [Concomitant]
  5. NSAID'S [Concomitant]
  6. CEFPIROME SULFATE (CEFPIROME SULFATE) [Concomitant]

REACTIONS (19)
  - ABSCESS [None]
  - ASPARTATE AMINOTRANSFERASE INCREASED [None]
  - BLOOD BILIRUBIN INCREASED [None]
  - BONE INFECTION [None]
  - C-REACTIVE PROTEIN INCREASED [None]
  - CANDIDIASIS [None]
  - CELLULITIS [None]
  - GENITAL ABSCESS [None]
  - HAEMATEMESIS [None]
  - HAEMATOCRIT DECREASED [None]
  - HAEMOGLOBIN DECREASED [None]
  - IMPLANT SITE INFECTION [None]
  - LIVER DISORDER [None]
  - PLATELET COUNT INCREASED [None]
  - POSTOPERATIVE INFECTION [None]
  - RED BLOOD CELL COUNT DECREASED [None]
  - STAPHYLOCOCCAL INFECTION [None]
  - ULCER HAEMORRHAGE [None]
  - WHITE BLOOD CELL COUNT INCREASED [None]
